FAERS Safety Report 6936965-3 (Version None)
Quarter: 2010Q3

REPORT INFORMATION
  Report Type: 
  Country: None (occurrence: None)
  Receive Date: 20100817
  Receipt Date: 20100811
  Transmission Date: 20110219
  Serious: Yes (Hospitalization)
  Sender: FDA-Public Use
  Company Number: 2010MA001640

PATIENT
  Age: 90 Year
  Sex: Female

DRUGS (4)
  1. TRAMADOL HYDROCHLORIDE [Suspect]
     Indication: ANALGESIC THERAPY
     Dosage: 50 MG; QID
  2. BENDROFLUMETHIAZIDE (BENDROFLUMETHIAZIDE) [Suspect]
     Indication: HYPERTENSION
     Dosage: 2.5 MG; QD
  3. WARFARIN SODIUM [Suspect]
     Indication: ARTHRALGIA
     Dosage: 5 MG; QD
  4. ACETAMINOPHEN [Concomitant]

REACTIONS (9)
  - CONSTIPATION [None]
  - DELIRIUM [None]
  - FALL [None]
  - HAEMATOMA [None]
  - HYPONATRAEMIA [None]
  - INCORRECT DOSE ADMINISTERED [None]
  - INTERNATIONAL NORMALISED RATIO INCREASED [None]
  - MALAISE [None]
  - MEMORY IMPAIRMENT [None]
